FAERS Safety Report 24650768 (Version 1)
Quarter: 2024Q4

REPORT INFORMATION
  Report Type: Other
  Country: MT (occurrence: MT)
  Receive Date: 20241122
  Receipt Date: 20241122
  Transmission Date: 20250115
  Serious: Yes (Hospitalization)
  Sender: ANI
  Company Number: MT-ANIPHARMA-012884

PATIENT
  Sex: Male

DRUGS (4)
  1. RISPERIDONE [Suspect]
     Active Substance: RISPERIDONE
     Indication: Substance-induced psychotic disorder
  2. HALOPERIDOL [Concomitant]
     Active Substance: HALOPERIDOL
     Indication: Substance-induced psychotic disorder
     Dosage: DAILY
     Route: 030
  3. LORAZEPAM [Concomitant]
     Active Substance: LORAZEPAM
     Indication: Substance-induced psychotic disorder
  4. PROCYCLIDINE [Concomitant]
     Active Substance: PROCYCLIDINE
     Indication: Substance-induced psychotic disorder

REACTIONS (2)
  - Trismus [Unknown]
  - Musculoskeletal stiffness [Unknown]
